FAERS Safety Report 18244298 (Version 1)
Quarter: 2020Q3

REPORT INFORMATION
  Report Type: Spontaneous
  Country: US (occurrence: US)
  Receive Date: 20200908
  Receipt Date: 20200908
  Transmission Date: 20201103
  Serious: Yes (Death, Hospitalization, Other)
  Sender: FDA-Public Use
  Company Number: US-GILEAD-2020-0493932

PATIENT
  Age: 68 Year
  Sex: Female

DRUGS (11)
  1. CEFEPIME [Concomitant]
     Active Substance: CEFEPIME HYDROCHLORIDE
  2. LOVENOX HP [Concomitant]
     Active Substance: ENOXAPARIN SODIUM
  3. PROPOFOL. [Concomitant]
     Active Substance: PROPOFOL
  4. REMDESIVIR. [Suspect]
     Active Substance: REMDESIVIR
     Indication: COVID-19
     Dosage: UNK
     Route: 065
     Dates: start: 20200822, end: 20200826
  5. VANCOMYCIN [Concomitant]
     Active Substance: VANCOMYCIN
  6. FENTANYL. [Concomitant]
     Active Substance: FENTANYL
  7. LEVOPHED [Concomitant]
     Active Substance: NOREPINEPHRINE BITARTRATE
  8. MELATONIN [Concomitant]
     Active Substance: MELATONIN
  9. VERSED [Concomitant]
     Active Substance: MIDAZOLAM HYDROCHLORIDE
  10. DECADRON [Concomitant]
     Active Substance: DEXAMETHASONE
  11. DEXAMETHASONE. [Concomitant]
     Active Substance: DEXAMETHASONE

REACTIONS (2)
  - Death [Fatal]
  - Malaise [Not Recovered/Not Resolved]

NARRATIVE: CASE EVENT DATE: 20200902
